FAERS Safety Report 4402728-6 (Version None)
Quarter: 2004Q3

REPORT INFORMATION
  Report Type: 
  Country: None (occurrence: None)
  Receive Date: 20040721
  Receipt Date: 20030707
  Transmission Date: 20050211
  Serious: No
  Sender: FDA-Public Use
  Company Number: US-BRISTOL-MYERS SQUIBB COMPANY-12387429

PATIENT
  Age: 51 Year
  Sex: Female
  Weight: 68 kg

DRUGS (4)
  1. ESTRACE [Suspect]
     Indication: MENOPAUSAL SYMPTOMS
     Route: 048
     Dates: start: 19930101, end: 20030101
  2. CARAFATE [Concomitant]
     Dates: start: 19930101
  3. LIBRAX [Concomitant]
  4. VIOXX [Concomitant]

REACTIONS (1)
  - FUNGAL INFECTION [None]
